FAERS Safety Report 6670996-6 (Version None)
Quarter: 2010Q2

REPORT INFORMATION
  Report Type: 
  Country: None (occurrence: None)
  Receive Date: 20100406
  Receipt Date: 20100406
  Transmission Date: 20101027
  Serious: Yes (Disabling, Other)
  Sender: FDA-Public Use
  Company Number: None

PATIENT
  Sex: Female
  Weight: 68.9467 kg

DRUGS (2)
  1. PACERONE [Suspect]
     Indication: CARDIAC OPERATION
     Dosage: 1-TAB A DAY
     Dates: start: 20090610, end: 20090904
  2. LISINOPRIL [Suspect]
     Indication: BLOOD PRESSURE
     Dosage: 1-TAB A DAY
     Dates: start: 20090727, end: 20090904

REACTIONS (1)
  - BLINDNESS [None]
